FAERS Safety Report 24981655 (Version 1)
Quarter: 2025Q1

REPORT INFORMATION
  Report Type: Spontaneous
  Country: CA (occurrence: CA)
  Receive Date: 20250218
  Receipt Date: 20250218
  Transmission Date: 20250408
  Serious: Yes (Life-Threatening, Hospitalization)
  Sender: PFIZER
  Company Number: CA-PFIZER INC-202500036844

PATIENT
  Age: 65 Year
  Sex: Female

DRUGS (8)
  1. METHOTREXATE SODIUM [Suspect]
     Active Substance: METHOTREXATE SODIUM
     Indication: Uveitis
     Route: 048
  2. CANAGLIFLOZIN [Concomitant]
     Active Substance: CANAGLIFLOZIN
  3. CANDESARTAN [Concomitant]
     Active Substance: CANDESARTAN
  4. FOLIC ACID [Concomitant]
     Active Substance: FOLIC ACID
  5. HYDROCHLOROTHIAZIDE [Concomitant]
     Active Substance: HYDROCHLOROTHIAZIDE
  6. METOPROLOL [Concomitant]
     Active Substance: METOPROLOL
  7. PREDNISONE [Concomitant]
     Active Substance: PREDNISONE
  8. VALACYCLOVIR [Concomitant]
     Active Substance: VALACYCLOVIR HYDROCHLORIDE

REACTIONS (8)
  - Asthenia [Unknown]
  - Cough [Unknown]
  - Dyspnoea exertional [Unknown]
  - Fatigue [Unknown]
  - Hypoxia [Unknown]
  - Mobility decreased [Unknown]
  - Oxygen therapy [Unknown]
  - Off label use [Unknown]
